FAERS Safety Report 7481862-0 (Version None)
Quarter: 2011Q2

REPORT INFORMATION
  Report Type: 
  Country: None (occurrence: None)
  Receive Date: 20110506
  Receipt Date: 20110429
  Transmission Date: 20111010
  Serious: Yes (Hospitalization)
  Sender: FDA-Public Use
  Company Number: 2011001464

PATIENT
  Age: 68 Year
  Sex: Female
  Weight: 59.9 kg

DRUGS (11)
  1. PRANDIN [Concomitant]
  2. SORAFENIB [Suspect]
     Indication: LUNG NEOPLASM MALIGNANT
     Dosage: 400 MG, BID, ORAL
     Route: 048
     Dates: start: 20101213, end: 20110326
  3. MELOXICAM [Concomitant]
  4. VALTREX [Concomitant]
  5. PREDNISONE [Concomitant]
  6. LOMOTIL [Concomitant]
  7. ERLOTINIB HYDROCHLORIDE [Suspect]
     Indication: LUNG NEOPLASM MALIGNANT
     Dosage: 150 MG, QD, ORAL
     Route: 048
     Dates: start: 20101213, end: 20110326
  8. CALCIUM + D (CALCIUM WITH VITAMIN D) [Concomitant]
  9. FERROUS SULFATE TAB [Concomitant]
  10. OMEPRAZOLE [Concomitant]
  11. LEVEMIR [Concomitant]

REACTIONS (2)
  - CARDIAC FAILURE CONGESTIVE [None]
  - SINUS TACHYCARDIA [None]
